FAERS Safety Report 9315876 (Version 4)
Quarter: 2014Q2

REPORT INFORMATION
  Report Type: Spontaneous
  Country: US (occurrence: US)
  Receive Date: 20130530
  Receipt Date: 20140425
  Transmission Date: 20141212
  Serious: Yes (Other)
  Sender: FDA-Public Use
  Company Number: US-AMGEN-USASP2013037456

PATIENT
  Age: 0 Day
  Sex: Female

DRUGS (2)
  1. ENBREL [Suspect]
     Indication: PRODUCT USED FOR UNKNOWN INDICATION
     Dosage: 50 MG, QWK
     Route: 064
     Dates: start: 200606
  2. PREDNISONE [Concomitant]
     Dosage: 5 MG, QD
     Route: 064
     Dates: start: 201207, end: 201304

REACTIONS (8)
  - Heart rate decreased [Recovered/Resolved]
  - Premature baby [Recovered/Resolved]
  - Dyspnoea [Unknown]
  - Apgar score abnormal [Unknown]
  - Otitis media [Unknown]
  - Constipation [Unknown]
  - Brain stem auditory evoked response abnormal [Recovered/Resolved]
  - Upper respiratory tract infection [Unknown]
